FAERS Safety Report 10167734 (Version 1)
Quarter: 2014Q2

REPORT INFORMATION
  Report Type: Report from Study
  Country: BR (occurrence: BR)
  Receive Date: 20140512
  Receipt Date: 20140512
  Transmission Date: 20141212
  Serious: Yes (Other)
  Sender: FDA-Public Use
  Company Number: PHHY2014BR056216

PATIENT
  Sex: Female
  Weight: 41 kg

DRUGS (3)
  1. RITALIN LA [Suspect]
     Indication: ATTENTION DEFICIT/HYPERACTIVITY DISORDER
     Dosage: 01 DF, DAILY
  2. DEPAKOTE [Concomitant]
     Indication: EPILEPSY
     Dosage: 01 DF, UNK
  3. SONEBON [Concomitant]
     Indication: EPILEPSY
     Dosage: 1.5 DF, QD

REACTIONS (3)
  - Pain [Recovered/Resolved]
  - General physical health deterioration [Recovered/Resolved]
  - Tremor [Recovered/Resolved]
